FAERS Safety Report 15746921 (Version 2)
Quarter: 2019Q1

REPORT INFORMATION
  Report Type: Spontaneous
  Country: CZ (occurrence: CZ)
  Receive Date: 20181220
  Receipt Date: 20190131
  Transmission Date: 20190417
  Serious: Yes (Other)
  Sender: FDA-Public Use
  Company Number: PHHY2018CZ185628

PATIENT
  Sex: Female

DRUGS (8)
  1. LAMOTRIGINE. [Suspect]
     Active Substance: LAMOTRIGINE
     Route: 064
  2. SERTRALINE [Suspect]
     Active Substance: SERTRALINE HYDROCHLORIDE
     Route: 064
  3. SULPIRIDE [Suspect]
     Active Substance: SULPIRIDE
     Route: 064
  4. FLUPENTIXOL [Suspect]
     Active Substance: FLUPENTIXOL
     Indication: FOETAL EXPOSURE DURING PREGNANCY
     Dosage: UNK UKN, UNKNOWN
     Route: 064
  5. SERTRALINE [Suspect]
     Active Substance: SERTRALINE HYDROCHLORIDE
     Indication: FOETAL EXPOSURE DURING PREGNANCY
     Dosage: UNK UKN, UNKNOWN
     Route: 064
  6. SULPIRIDE [Suspect]
     Active Substance: SULPIRIDE
     Indication: FOETAL EXPOSURE DURING PREGNANCY
     Dosage: UNK UKN, UNKNOWN
     Route: 064
  7. LAMOTRIGINE. [Suspect]
     Active Substance: LAMOTRIGINE
     Indication: FOETAL EXPOSURE DURING PREGNANCY
     Dosage: UNK UKN, UNKNOWN
     Route: 064
  8. FLUPENTIXOL [Suspect]
     Active Substance: FLUPENTIXOL
     Indication: OBSESSIVE-COMPULSIVE DISORDER

REACTIONS (2)
  - Premature baby [Unknown]
  - Foetal exposure during pregnancy [Unknown]
